FAERS Safety Report 20454417 (Version 1)
Quarter: 2022Q1

REPORT INFORMATION
  Report Type: Spontaneous
  Country: AU (occurrence: AU)
  Receive Date: 20220210
  Receipt Date: 20220210
  Transmission Date: 20220424
  Serious: Yes (Other)
  Sender: FDA-Public Use
  Company Number: AU-ALXN-A202201663

PATIENT
  Sex: Male

DRUGS (1)
  1. ULTOMIRIS [Suspect]
     Active Substance: RAVULIZUMAB-CWVZ
     Indication: Paroxysmal nocturnal haemoglobinuria
     Dosage: UNK
     Route: 065

REACTIONS (6)
  - Haemolysis [Unknown]
  - Haemoglobin decreased [Recovered/Resolved]
  - Suspected COVID-19 [Recovering/Resolving]
  - Dyspnoea [Recovering/Resolving]
  - Palpitations [Recovering/Resolving]
  - Influenza like illness [Recovering/Resolving]
